FAERS Safety Report 23232115 (Version 3)
Quarter: 2023Q4

REPORT INFORMATION
  Report Type: Report from Study
  Country: BE (occurrence: BE)
  Receive Date: 20231127
  Receipt Date: 20231208
  Transmission Date: 20240110
  Serious: Yes (Hospitalization)
  Sender: FDA-Public Use
  Company Number: BE-ABBVIE-5498868

PATIENT
  Age: 77 Year
  Sex: Male

DRUGS (9)
  1. EPCORITAMAB [Suspect]
     Active Substance: EPCORITAMAB
     Indication: Follicular lymphoma
     Dosage: 0.16 MG PRIMING DOSE; C1, D1, TOTAL
     Route: 058
     Dates: start: 20231025, end: 20231025
  2. EPCORITAMAB [Suspect]
     Active Substance: EPCORITAMAB
     Dosage: 0.8 MG 1ST INTERMEDIATE DOSE; C1, D8, TOTAL
     Route: 058
     Dates: start: 20231102, end: 20231102
  3. EPCORITAMAB [Suspect]
     Active Substance: EPCORITAMAB
     Dosage: 48 MG FULL DOSE; C1, D15, TOTAL
     Route: 058
     Dates: start: 20231109, end: 20231109
  4. EPCORITAMAB [Suspect]
     Active Substance: EPCORITAMAB
     Dosage: 48 MG C2-3, D1, 8, 15 + 22, EVERY 1 WEEKS
     Route: 058
     Dates: start: 20231123
  5. RITUXIMAB [Suspect]
     Active Substance: RITUXIMAB
     Indication: Follicular lymphoma
     Dosage: 800 MG, EVERY 1 WEEKS
     Route: 042
     Dates: start: 20231025, end: 20231025
  6. RITUXIMAB [Suspect]
     Active Substance: RITUXIMAB
     Dosage: 700 MG, EVERY 1 WEEKS
     Route: 042
     Dates: start: 20231102
  7. LENALIDOMIDE [Suspect]
     Active Substance: LENALIDOMIDE
     Indication: Follicular lymphoma
     Dosage: 20 MG CYCLE 1 TO 12; DAY 1 TO 21, EVERY 1 DAYS
     Route: 065
     Dates: start: 20231025, end: 20231114
  8. ROSUVASTATIN [Concomitant]
     Active Substance: ROSUVASTATIN
     Indication: Hypercholesterolaemia
     Dosage: 10 MG, EVERY 1 DAYS
     Dates: start: 20191129
  9. PANTOPRAZOLE SODIUM [Concomitant]
     Active Substance: PANTOPRAZOLE SODIUM
     Indication: Abdominal pain
     Dosage: 20 MG, EVERY 1 DAYS
     Dates: start: 20231102

REACTIONS (1)
  - Cytokine release syndrome [Not Recovered/Not Resolved]

NARRATIVE: CASE EVENT DATE: 20231116
